FAERS Safety Report 11550075 (Version 1)
Quarter: 2015Q3

REPORT INFORMATION
  Report Type: Spontaneous
  Country: US (occurrence: US)
  Receive Date: 20150924
  Receipt Date: 20150924
  Transmission Date: 20151125
  Serious: No
  Sender: FDA-Public Use
  Company Number: US-SHIRE-US201512024

PATIENT
  Age: 42 Year
  Sex: Male
  Weight: 108.84 kg

DRUGS (6)
  1. WELLBUTRIN [Concomitant]
     Active Substance: BUPROPION HYDROCHLORIDE
     Indication: DEPRESSION
     Dosage: 300 MG, 1X/DAY:QD
     Route: 048
     Dates: start: 2013
  2. PENTASA [Suspect]
     Active Substance: MESALAMINE
     Indication: CROHN^S DISEASE
     Dosage: 1000 MG (TWO 500 MG CAPSULES), OTHER (EVERY 4 HOURS)
     Route: 048
     Dates: start: 201506, end: 2015
  3. OMEPRAZOL                          /00661201/ [Concomitant]
     Active Substance: OMEPRAZOLE
     Indication: GASTROOESOPHAGEAL REFLUX DISEASE
     Dosage: 20 MG, 1X/DAY:QD
     Route: 048
     Dates: start: 2008
  4. MULTIVITAMIN                       /00097801/ [Concomitant]
     Active Substance: VITAMINS
     Indication: CROHN^S DISEASE
     Dosage: 1 DF, 1X/DAY:QD
     Route: 048
     Dates: start: 2015
  5. PROPECIA [Concomitant]
     Active Substance: FINASTERIDE
     Indication: ALOPECIA
     Dosage: 1 MG, 1X/DAY:QD
     Route: 048
     Dates: start: 2009
  6. PROBIOTIC                          /06395501/ [Concomitant]
     Active Substance: BIFIDOBACTERIUM ANIMALIS SUBSP. LACTIS
     Indication: GASTROINTESTINAL DISORDER
     Dosage: UNK, AS REQ^D
     Route: 065
     Dates: start: 2012

REACTIONS (2)
  - No adverse event [Recovered/Resolved]
  - Product use issue [Recovered/Resolved]

NARRATIVE: CASE EVENT DATE: 201506
